FAERS Safety Report 24678598 (Version 2)
Quarter: 2025Q1

REPORT INFORMATION
  Report Type: Spontaneous
  Country: US (occurrence: US)
  Receive Date: 20241129
  Receipt Date: 20250108
  Transmission Date: 20250409
  Serious: No
  Sender: GLAXOSMITHKLINE
  Company Number: US-GSKCCFUS-Case-02155864_AE-118835

PATIENT
  Sex: Male

DRUGS (2)
  1. TRELEGY ELLIPTA [Suspect]
     Active Substance: FLUTICASONE FUROATE\UMECLIDINIUM BROMIDE\VILANTEROL TRIFENATATE
     Indication: Asthma
     Dosage: UNK, QD, 200/62.5/25
     Route: 055
  2. SALMETEROL [Suspect]
     Active Substance: SALMETEROL
     Indication: Product used for unknown indication

REACTIONS (2)
  - Expired product administered [Unknown]
  - Product dose omission issue [Unknown]
